FAERS Safety Report 8890162 (Version 2)
Quarter: 2012Q4

REPORT INFORMATION
  Report Type: 
  Country: IT (occurrence: IT)
  Receive Date: 20121107
  Receipt Date: 20121211
  Transmission Date: 20130627
  Serious: Yes (Hospitalization)
  Sender: FDA-Public Use
  Company Number: IT-JNJFOC-20121017079

PATIENT
  Age: 83 Year
  Sex: Female

DRUGS (7)
  1. SERENASE [Suspect]
     Indication: SENILE PSYCHOSIS
     Route: 048
     Dates: start: 20121001, end: 20121023
  2. SEROQUEL [Suspect]
     Indication: SENILE PSYCHOSIS
     Route: 048
     Dates: start: 20121001, end: 20121023
  3. ATENOLOLO [Concomitant]
     Indication: PRODUCT USED FOR UNKNOWN INDICATION
     Route: 065
  4. MODURETIC [Concomitant]
     Indication: PRODUCT USED FOR UNKNOWN INDICATION
     Route: 065
  5. MEDIPO [Concomitant]
     Indication: PRODUCT USED FOR UNKNOWN INDICATION
     Route: 065
  6. CARDIOASPIRIN [Concomitant]
     Indication: PRODUCT USED FOR UNKNOWN INDICATION
     Route: 048
  7. EXELON [Concomitant]
     Indication: DEMENTIA ALZHEIMER^S TYPE
     Route: 062

REACTIONS (1)
  - Long QT syndrome [Recovering/Resolving]
